FAERS Safety Report 4533273-5 (Version None)
Quarter: 2004Q4

REPORT INFORMATION
  Report Type: 
  Country: None (occurrence: None)
  Receive Date: 20041107
  Receipt Date: 20040914
  Transmission Date: 20050328
  Serious: Yes (Hospitalization)
  Sender: FDA-Public Use
  Company Number: 800127

PATIENT
  Age: 58 Year
  Sex: Male
  Weight: 97.977 kg

DRUGS (16)
  1. DIANEAL [Suspect]
     Indication: PERITONEAL DIALYSIS
     Dosage: 14 L; QD; INTRAPERITONEAL
     Route: 033
     Dates: start: 20030530
  2. NEPHROCAPS [Concomitant]
  3. CYSTAGON ^MYLAN^ [Concomitant]
  4. ASPIRIN [Concomitant]
  5. MECLIZINE [Concomitant]
  6. REGLAN [Concomitant]
  7. ERYTHRO-TEVA [Concomitant]
  8. ATENOLOL [Concomitant]
  9. MARINOL [Concomitant]
  10. ULTRACET [Concomitant]
  11. TUMS [Concomitant]
  12. INSULIN BASAL [Concomitant]
  13. HUMULUS INSULIN [Concomitant]
  14. LOPERAMIDE HCL [Concomitant]
  15. PHENYTOIN [Concomitant]
  16. VICODIN [Concomitant]

REACTIONS (2)
  - CATHETER RELATED COMPLICATION [None]
  - PERITONITIS [None]
